FAERS Safety Report 9608563 (Version 3)
Quarter: 2014Q3

REPORT INFORMATION
  Report Type: Spontaneous
  Country: BR (occurrence: BR)
  Receive Date: 20131009
  Receipt Date: 20140725
  Transmission Date: 20150326
  Serious: Yes (Life-Threatening, Hospitalization, Other)
  Sender: FDA-Public Use
  Company Number: BR-PFIZER INC-2013287767

PATIENT
  Age: 67 Year
  Sex: Female

DRUGS (8)
  1. CRESTOR [Suspect]
     Active Substance: ROSUVASTATIN CALCIUM
     Indication: BLOOD CHOLESTEROL INCREASED
     Dosage: 20 MG DAILY
     Route: 048
  2. BRILINTA [Suspect]
     Active Substance: TICAGRELOR
     Indication: VENOUS OCCLUSION
     Dosage: 90 MG, 2X/DAY
     Route: 048
     Dates: start: 201310
  3. FEMOSTON CONTI [Concomitant]
     Active Substance: DYDROGESTERONE\ESTRADIOL
     Indication: HORMONE REPLACEMENT THERAPY
     Dosage: UNK
     Route: 065
  4. PANTOPRAZOLE [Concomitant]
     Active Substance: PANTOPRAZOLE SODIUM
     Indication: PROPHYLAXIS
     Dosage: 40 MG, UNK
     Route: 065
  5. ASPIRINA [Concomitant]
     Active Substance: ASPIRIN
     Indication: VENOUS OCCLUSION
     Dosage: UNK
     Route: 065
     Dates: start: 201310
  6. CONCOR [Concomitant]
     Active Substance: BISOPROLOL FUMARATE
     Dosage: UNK
     Route: 048
     Dates: start: 201310
  7. ATACAND HCT [Suspect]
     Active Substance: CANDESARTAN CILEXETIL\HYDROCHLOROTHIAZIDE
     Indication: HYPERTENSION
     Dosage: 16/12.5 MG, DAILY
     Route: 048
     Dates: start: 2010, end: 201310
  8. ATENOLOL. [Suspect]
     Active Substance: ATENOLOL
     Indication: HYPERTENSION
     Dosage: 50 MG, 2X/DAY
     Route: 048

REACTIONS (5)
  - Anaphylactic shock [Recovered/Resolved]
  - Off label use [Not Recovered/Not Resolved]
  - Pulmonary embolism [Recovered/Resolved]
  - Venous occlusion [Recovered/Resolved]
  - Haematoma [Not Recovered/Not Resolved]

NARRATIVE: CASE EVENT DATE: 201310
